FAERS Safety Report 8790721 (Version 1)
Quarter: 2012Q4

REPORT INFORMATION
  Report Type: Spontaneous
  Country: US (occurrence: None)
  Receive Date: 20120913
  Receipt Date: 20120913
  Transmission Date: 20130627
  Serious: Yes (Life-Threatening, Hospitalization, Disabling, Other)
  Sender: FDA-Public Use
  Company Number: None

PATIENT
  Sex: Male
  Weight: 127.3 kg

DRUGS (2)
  1. RISPERIDONE [Suspect]
     Indication: MANIC
     Dosage: many overdoses over 42+ years
  2. RISPERIDONE [Suspect]
     Indication: BIPOLAR DISORDER
     Dosage: many overdoses over 42+ years

REACTIONS (4)
  - Illusion [None]
  - Thinking abnormal [None]
  - Pain [None]
  - Toxicity to various agents [None]
